FAERS Safety Report 26173355 (Version 1)
Quarter: 2025Q4

REPORT INFORMATION
  Report Type: Spontaneous
  Country: GB (occurrence: GB)
  Receive Date: 20251218
  Receipt Date: 20251218
  Transmission Date: 20260118
  Serious: Yes (Hospitalization, Other)
  Sender: TEVA
  Company Number: None

PATIENT
  Age: 86 Year
  Sex: Female

DRUGS (19)
  1. TRIMETHOPRIM [Suspect]
     Active Substance: TRIMETHOPRIM
     Indication: Product used for unknown indication
     Dosage: DAILY DOSE: 400 MG?TRIMETHOPRIM 200 MG TABLETS ONE TO BE TAKEN TWICE A DAY X 14 TABLETS- X 3 TABL...
     Route: 065
  2. APIXABAN [Concomitant]
     Active Substance: APIXABAN
     Indication: Product used for unknown indication
  3. Triamterene + Furosemide [Concomitant]
     Indication: Product used for unknown indication
  4. ACETAMINOPHEN [Concomitant]
     Active Substance: ACETAMINOPHEN
     Indication: Product used for unknown indication
  5. BISOPROLOL [Concomitant]
     Active Substance: BISOPROLOL
     Indication: Product used for unknown indication
     Dosage: BISOPROLOL 2.5 MG
  6. EDOXABAN [Concomitant]
     Active Substance: EDOXABAN
     Indication: Product used for unknown indication
     Dosage: DAILY DOSE: 30 MG?SUSPENDED ON WARD AKI
  7. OMEPRAZOLE [Concomitant]
     Active Substance: OMEPRAZOLE
     Indication: Product used for unknown indication
     Dosage: DAILY DOSE: 20 MG
  8. Triamterene + Furosemide [Concomitant]
     Indication: Product used for unknown indication
  9. AMILORIDE HYDROCHLORIDE\FUROSEMIDE [Concomitant]
     Active Substance: AMILORIDE HYDROCHLORIDE\FUROSEMIDE
     Indication: Product used for unknown indication
  10. Spironolactone + Furosemide [Concomitant]
     Indication: Product used for unknown indication
  11. FUSIDIC ACID [Concomitant]
     Active Substance: FUSIDIC ACID
     Indication: Product used for unknown indication
     Dosage: DAILY DOSE: 4 DOSAGE FORM , 2%, ?APPLY FOUR TIMES A DAY 30 GRAM- TBC WHERE APPLYING- HAS POD
  12. Spironolactone + Furosemide [Concomitant]
     Indication: Product used for unknown indication
  13. AproDerm [Concomitant]
     Indication: Product used for unknown indication
     Dosage: AS DIRECTED- LAST ISSUED 14/7/25- USES PRN
  14. EMPAGLIFLOZIN [Concomitant]
     Active Substance: EMPAGLIFLOZIN
     Indication: Product used for unknown indication
     Dosage: DAILY DOSE: 10 MG? SUSPENDED ON WARD AKI
  15. CHLORAMPHENICOL [Concomitant]
     Active Substance: CHLORAMPHENICOL
     Indication: Product used for unknown indication
     Dosage: CHLORAMPHENICOL 0.5% EYE DROPS ONE DROP TO BE USED IN THE AFFECTED EYE (S) FOUR?TIMES A DAY (WHIC...
  16. FUROSEMIDE [Concomitant]
     Active Substance: FUROSEMIDE
     Indication: Product used for unknown indication
     Dosage: DAILY DOSE: 40 MG?SUSPENDED ON WARD** DOSE?INCREASED ON LAST AEC ADMISSION ON 21/8/25 TO 40MG BD*...
  17. CHOLECALCIFEROL [Concomitant]
     Active Substance: CHOLECALCIFEROL
     Indication: Product used for unknown indication
     Dosage: COLECALCIFEROL 800 UNIT CAPSULES TAKE ONE DAILY- HELD HIGH CA
  18. CARBIMAZOLE [Concomitant]
     Active Substance: CARBIMAZOLE
     Indication: Product used for unknown indication
     Dosage: DAILY DOSE: 5 MG?X 10 TABLETS IN POD
  19. CARBOXYMETHYLCELLULOSE SODIUM\GLYCERIN [Concomitant]
     Active Substance: CARBOXYMETHYLCELLULOSE SODIUM\GLYCERIN
     Indication: Product used for unknown indication
     Dosage: 0.5%,  ONE DROP INTO BOTH EYES PRN- PT USES REGULAR

REACTIONS (1)
  - Acute kidney injury [Unknown]
